FAERS Safety Report 24465822 (Version 1)
Quarter: 2024Q4

REPORT INFORMATION
  Report Type: Report from Study
  Country: US (occurrence: US)
  Receive Date: 20241018
  Receipt Date: 20241018
  Transmission Date: 20250114
  Serious: No
  Sender: ROCHE
  Company Number: US-ROCHE-3522867

PATIENT
  Age: 54 Year
  Sex: Male

DRUGS (7)
  1. XOLAIR [Suspect]
     Active Substance: OMALIZUMAB
     Indication: Urticaria
     Route: 058
  2. XOLAIR [Suspect]
     Active Substance: OMALIZUMAB
  3. ALLOPURINOL [Concomitant]
     Active Substance: ALLOPURINOL
     Route: 048
     Dates: start: 20231231
  4. BUSPIRONE [Concomitant]
     Active Substance: BUSPIRONE HYDROCHLORIDE
     Route: 048
     Dates: start: 20231220
  5. CLOBETASOL [Concomitant]
     Active Substance: CLOBETASOL
     Dosage: APPLY THIN LAYER TWICE DAILY TO AFFECTED ARES ON TRUNK AND EXTREMITIES AS NEED
     Route: 061
     Dates: start: 20231227
  6. HYDROXYZINE HYDROCHLORIDE [Concomitant]
     Active Substance: HYDROXYZINE HYDROCHLORIDE
     Dosage: TAKE 1 TABLET BY MOUTH BEFORE BEDTIME AS NEED CAN INCREASE TO 2 PILL IF NOT OVERSEDATED
     Route: 048
     Dates: start: 20230131
  7. METOPROLOL SUCCINATE [Concomitant]
     Active Substance: METOPROLOL SUCCINATE
     Dosage: EXTENDED RELEASE 24 HR
     Route: 048
     Dates: start: 20230912

REACTIONS (4)
  - Urticarial vasculitis [Unknown]
  - Gout [Unknown]
  - Anxiety [Unknown]
  - Hypertension [Unknown]

NARRATIVE: CASE EVENT DATE: 20231211
